FAERS Safety Report 9454497 (Version 2)
Quarter: 2013Q3

REPORT INFORMATION
  Report Type: Spontaneous
  Country: CN (occurrence: CN)
  Receive Date: 20130812
  Receipt Date: 20130830
  Transmission Date: 20140515
  Serious: Yes (Death, Other)
  Sender: FDA-Public Use
  Company Number: CN-ABBOTT-13P-035-1131708-00

PATIENT
  Age: 24 Year
  Sex: Male

DRUGS (12)
  1. CYCLOSPORINE [Suspect]
     Indication: IMMUNOSUPPRESSANT DRUG THERAPY
     Route: 048
  2. CYCLOSPORINE [Suspect]
     Indication: PROPHYLAXIS AGAINST GRAFT VERSUS HOST DISEASE
  3. METHOTREXATE [Suspect]
     Indication: IMMUNOSUPPRESSANT DRUG THERAPY
     Dosage: 15 MG/M*2 ON DAY 1
     Route: 042
  4. METHOTREXATE [Suspect]
     Indication: PROPHYLAXIS AGAINST GRAFT VERSUS HOST DISEASE
     Dosage: 10 MG/M*2 ON DAY 3, 6, AND 11
     Route: 042
  5. ANTITHYMOCYTE IMMUNOGLOBULIN [Suspect]
     Indication: IMMUNOSUPPRESSANT DRUG THERAPY
  6. ANTITHYMOCYTE IMMUNOGLOBULIN [Suspect]
     Indication: PROPHYLAXIS AGAINST GRAFT VERSUS HOST DISEASE
  7. MYCOPHENOLATE MOFETIL [Suspect]
     Indication: IMMUNOSUPPRESSANT DRUG THERAPY
     Route: 048
  8. CYCLOSPORIN A [Suspect]
     Indication: IMMUNOSUPPRESSANT DRUG THERAPY
  9. CYTARABINE [Concomitant]
     Indication: PREMEDICATION
  10. BUSULFAN [Concomitant]
     Indication: PREMEDICATION
  11. FLUDARABINE [Concomitant]
     Indication: PREMEDICATION
  12. IDARUBICIN [Concomitant]
     Indication: PREMEDICATION
     Dosage: 15 MG/M*2

REACTIONS (3)
  - Acute graft versus host disease in intestine [Fatal]
  - Acute graft versus host disease in liver [Unknown]
  - Chronic graft versus host disease in skin [Unknown]
